FAERS Safety Report 7982943-5 (Version None)
Quarter: 2011Q4

REPORT INFORMATION
  Report Type: 
  Country: None (occurrence: None)
  Receive Date: 20111215
  Receipt Date: 20111206
  Transmission Date: 20120403
  Serious: Yes (Hospitalization, Disabling)
  Sender: FDA-Public Use
  Company Number: US-MERCK-1108USA01138

PATIENT
  Age: 74 Year
  Sex: Female

DRUGS (1)
  1. FOSAMAX [Suspect]
     Route: 048
     Dates: end: 20090101

REACTIONS (13)
  - HAEMARTHROSIS [None]
  - HYPERTENSION [None]
  - TYPE 2 DIABETES MELLITUS [None]
  - HAEMORRHAGIC ANAEMIA [None]
  - FEMUR FRACTURE [None]
  - POLLAKIURIA [None]
  - ARTERIOSCLEROSIS CORONARY ARTERY [None]
  - FALL [None]
  - ARTHROPATHY [None]
  - WOUND SECRETION [None]
  - HYPERLIPIDAEMIA [None]
  - OSTEOPOROSIS [None]
  - HYPOTHYROIDISM [None]
